FAERS Safety Report 14472628 (Version 4)
Quarter: 2018Q3

REPORT INFORMATION
  Report Type: Spontaneous
  Country: JP (occurrence: JP)
  Receive Date: 20180201
  Receipt Date: 20180927
  Transmission Date: 20181010
  Serious: Yes (Hospitalization, Other)
  Sender: FDA-Public Use
  Company Number: JP-BRISTOL-MYERS SQUIBB COMPANY-BMS-2018-007481

PATIENT
  Age: 84 Year
  Sex: Male
  Weight: 58 kg

DRUGS (4)
  1. NIVOLUMAB [Suspect]
     Active Substance: NIVOLUMAB
     Indication: MALIGNANT MELANOMA
     Dosage: 3 MG/KG, Q2WK
     Route: 041
     Dates: start: 20170721, end: 20171110
  2. PREDONINE [Suspect]
     Active Substance: PREDNISOLONE
     Indication: HAEMATOCHEZIA
     Dosage: 5 MG, BID
     Route: 048
     Dates: start: 20171229, end: 20180104
  3. YERVOY [Suspect]
     Active Substance: IPILIMUMAB
     Indication: MALIGNANT MELANOMA
     Dosage: 3 MG/KG, Q3WK
     Route: 041
     Dates: start: 20171201, end: 20171222
  4. PREDONINE [Suspect]
     Active Substance: PREDNISOLONE
     Indication: PRODUCT USED FOR UNKNOWN INDICATION
     Dosage: 5 MG, QD
     Route: 048
     Dates: start: 20180105

REACTIONS (5)
  - Malignant neoplasm progression [Unknown]
  - Anxiety [Unknown]
  - Diabetes mellitus [Recovering/Resolving]
  - Colitis [Recovered/Resolved]
  - Dysphonia [Unknown]

NARRATIVE: CASE EVENT DATE: 20170919
